FAERS Safety Report 11274229 (Version 2)
Quarter: 2015Q3

REPORT INFORMATION
  Report Type: Report from Study
  Country: US (occurrence: US)
  Receive Date: 20150715
  Receipt Date: 20150729
  Transmission Date: 20151125
  Serious: Yes (Other)
  Sender: FDA-Public Use
  Company Number: US-SA-2015SA091144

PATIENT
  Age: 61 Year
  Sex: Female

DRUGS (1)
  1. AUBAGIO [Suspect]
     Active Substance: TERIFLUNOMIDE
     Indication: MULTIPLE SCLEROSIS
     Route: 048
     Dates: start: 20150612, end: 20150616

REACTIONS (13)
  - Oral pain [Unknown]
  - Asthenia [Unknown]
  - Dizziness [Unknown]
  - Ear pain [Unknown]
  - Syncope [Unknown]
  - Pyrexia [Unknown]
  - Fatigue [Unknown]
  - Asthenia [Unknown]
  - Lymphadenopathy [Unknown]
  - Pallor [Unknown]
  - Malaise [Unknown]
  - Hypersensitivity [Unknown]
  - Oral herpes [Unknown]

NARRATIVE: CASE EVENT DATE: 20150612
